FAERS Safety Report 5026762-0 (Version None)
Quarter: 2006Q2

REPORT INFORMATION
  Report Type: 
  Country: None (occurrence: None)
  Receive Date: 20060609
  Receipt Date: 20060605
  Transmission Date: 20061013
  Serious: Yes (Hospitalization, Other)
  Sender: FDA-Public Use
  Company Number: 200612320GDS

PATIENT
  Age: 54 Year
  Sex: Male

DRUGS (2)
  1. ASPIRIN [Suspect]
  2. TICLOPIDINE [Concomitant]

REACTIONS (4)
  - ANGINA PECTORIS [None]
  - CORONARY ARTERY RESTENOSIS [None]
  - GASTRIC CANCER [None]
  - ISCHAEMIA [None]
